FAERS Safety Report 7625784-0 (Version None)
Quarter: 2011Q3

REPORT INFORMATION
  Report Type: 
  Country: None (occurrence: None)
  Receive Date: 20110721
  Receipt Date: 20110712
  Transmission Date: 20111222
  Serious: Yes (Hospitalization, Other)
  Sender: FDA-Public Use
  Company Number: PHHY2011US63370

PATIENT
  Age: 84 Year
  Sex: Male

DRUGS (1)
  1. SIMVASTATIN [Suspect]

REACTIONS (10)
  - PANCYTOPENIA [None]
  - RENAL FAILURE ACUTE [None]
  - URINARY INCONTINENCE [None]
  - RHABDOMYOLYSIS [None]
  - CONFUSIONAL STATE [None]
  - DIARRHOEA [None]
  - RASH ERYTHEMATOUS [None]
  - BACTERIAL INFECTION [None]
  - ASTHENIA [None]
  - PYREXIA [None]
